FAERS Safety Report 6277097-X (Version None)
Quarter: 2009Q3

REPORT INFORMATION
  Report Type: 
  Country: None (occurrence: None)
  Receive Date: 20090722
  Receipt Date: 20090107
  Transmission Date: 20100115
  Serious: No
  Sender: FDA-Public Use
  Company Number: US-BRISTOL-MYERS SQUIBB COMPANY-14462014

PATIENT
  Age: 74 Year
  Sex: Male
  Weight: 97 kg

DRUGS (5)
  1. COUMADIN [Suspect]
     Indication: THROMBOSIS
     Dates: start: 20040101
  2. GLUCOPHAGE [Concomitant]
  3. HUMULIN INSULIN [Concomitant]
  4. LOPID [Concomitant]
  5. NORVASC [Concomitant]

REACTIONS (4)
  - IMPAIRED HEALING [None]
  - WOUND [None]
  - WOUND HAEMORRHAGE [None]
  - WOUND INFECTION [None]
